FAERS Safety Report 7092132-7 (Version None)
Quarter: 2010Q4

REPORT INFORMATION
  Report Type: 
  Country: None (occurrence: None)
  Receive Date: 20101101
  Receipt Date: 20101020
  Transmission Date: 20110411
  Serious: Yes (Other)
  Sender: FDA-Public Use
  Company Number: AVE_02021_2010

PATIENT
  Sex: Male

DRUGS (6)
  1. CLONIDINE [Suspect]
     Indication: HYPERTENSION
     Dosage: (0.2 MG QD, VIA 1/WEEKLY PATCH TRANSDERMAL)
     Route: 062
     Dates: start: 20101015, end: 20101018
  2. ASPIRIN [Concomitant]
  3. LASIX [Concomitant]
  4. KLOR-CON [Concomitant]
  5. SIMVASTATIN [Concomitant]
  6. SULFAMETHOXAZOLE-TRI 28 800 [Concomitant]

REACTIONS (2)
  - BLOOD PRESSURE DECREASED [None]
  - NAUSEA [None]
